FAERS Safety Report 7571453-5 (Version None)
Quarter: 2011Q2

REPORT INFORMATION
  Report Type: 
  Country: None (occurrence: None)
  Receive Date: 20110624
  Receipt Date: 20110620
  Transmission Date: 20111010
  Serious: Yes (Hospitalization)
  Sender: FDA-Public Use
  Company Number: GB-TEVA-285122ISR

PATIENT
  Age: 26 Year
  Sex: Female

DRUGS (1)
  1. LAMOTRIGINE [Suspect]
     Indication: EPILEPSY

REACTIONS (8)
  - CLONUS [None]
  - CEREBELLAR SYNDROME [None]
  - GRAND MAL CONVULSION [None]
  - HYPERREFLEXIA [None]
  - SOMNOLENCE [None]
  - INTENTIONAL OVERDOSE [None]
  - NERVOUS SYSTEM DISORDER [None]
  - HYPERTONIA [None]
